FAERS Safety Report 8233976-5 (Version None)
Quarter: 2012Q1

REPORT INFORMATION
  Report Type: 
  Country: None (occurrence: None)
  Receive Date: 20120326
  Receipt Date: 20120312
  Transmission Date: 20120608
  Serious: Yes (Other)
  Sender: FDA-Public Use
  Company Number: US-BAYER-2012-028594

PATIENT
  Age: 81 Year
  Sex: Male
  Weight: 79.38 kg

DRUGS (11)
  1. VITAMIN B COMPLEX CAP [Concomitant]
     Dosage: 1 DF, HS
     Route: 048
     Dates: start: 20020101
  2. OXYBUTYNIN [Concomitant]
     Indication: PROSTATOMEGALY
     Dates: start: 20120201
  3. NAMENDA [Concomitant]
     Indication: MEMORY IMPAIRMENT
     Dosage: 20 MG, HS
     Route: 048
     Dates: start: 20120101
  4. FISH OIL [Concomitant]
     Dosage: 600 MG, BID
     Route: 048
     Dates: start: 20020101
  5. RIVAROXABAN [Interacting]
     Indication: HEART RATE IRREGULAR
  6. ASPIRIN [Suspect]
     Dosage: 81 MG, HS
     Route: 048
     Dates: start: 20020101
  7. DRUGS USED IN BENIGN PROSTATIC HYPERTROPHY [Concomitant]
     Indication: PROSTATOMEGALY
  8. CARVEDILOL [Concomitant]
     Indication: ILL-DEFINED DISORDER
     Dosage: 6.25 MG, BID
     Route: 048
     Dates: start: 20090101
  9. GLUCOSAMINE/MSM [Concomitant]
     Indication: LIMB DISCOMFORT
     Dosage: 1500 MG, BID
     Route: 048
     Dates: start: 20070101
  10. RIVAROXABAN [Interacting]
     Indication: CEREBROVASCULAR ACCIDENT PROPHYLAXIS
     Dosage: 20 MG, HS
     Route: 048
     Dates: start: 20120221
  11. LIPITOR [Concomitant]
     Indication: BLOOD CHOLESTEROL INCREASED
     Dosage: 80 MG, HS
     Route: 048
     Dates: start: 20020101

REACTIONS (1)
  - HAEMOPTYSIS [None]
